FAERS Safety Report 13902943 (Version 3)
Quarter: 2017Q3

REPORT INFORMATION
  Report Type: Report from Study
  Country: BE (occurrence: BE)
  Receive Date: 20170824
  Receipt Date: 20170905
  Transmission Date: 20171127
  Serious: Yes (Hospitalization)
  Sender: FDA-Public Use
  Company Number: BE-ROCHE-1981349

PATIENT
  Age: 36 Year
  Sex: Female
  Weight: 52.1 kg

DRUGS (13)
  1. OCRELIZUMAB. [Suspect]
     Active Substance: OCRELIZUMAB
     Dosage: ON DAY 15
     Route: 042
  2. OCRELIZUMAB. [Suspect]
     Active Substance: OCRELIZUMAB
     Dosage: 600 MG ON DAY 1 OF EACH SUBSEQUENT CYCLE FOR A MAXIMUM OF 4 CYCLES AS PER PROTOCOL.?DATE OF MOST REC
     Route: 042
  3. LORAMET [Concomitant]
     Active Substance: LORMETAZEPAM
     Route: 048
     Dates: start: 20170324
  4. OCRELIZUMAB. [Suspect]
     Active Substance: OCRELIZUMAB
     Indication: RELAPSING-REMITTING MULTIPLE SCLEROSIS
     Dosage: ON DAY 1
     Route: 042
     Dates: start: 20170209
  5. DEPAKINE [Concomitant]
     Active Substance: VALPROATE SODIUM
     Route: 048
     Dates: start: 20161209
  6. LYRICA [Concomitant]
     Active Substance: PREGABALIN
     Route: 048
     Dates: start: 20160412
  7. TRADONAL [Concomitant]
     Active Substance: TRAMADOL HYDROCHLORIDE
     Route: 048
     Dates: start: 20161104
  8. SOLU-MEDROL [Concomitant]
     Active Substance: METHYLPREDNISOLONE SODIUM SUCCINATE
     Route: 042
     Dates: start: 20170617, end: 20170619
  9. CETIRIZINE [Concomitant]
     Active Substance: CETIRIZINE HYDROCHLORIDE
     Dosage: ONCE BEFORE INFUSION
     Route: 048
     Dates: start: 20170713
  10. METHYLPREDNISOLONE. [Suspect]
     Active Substance: METHYLPREDNISOLONE
     Indication: PREMEDICATION
     Dosage: SUBSEQUENTLY RECEIVED ON 23/FEB/2017?DATE OF MOST RECENT DOSE OF 100 MG PRIOR TO THIS EVENT ONSET: 1
     Route: 042
     Dates: start: 20170209
  11. D-CURE [Concomitant]
     Dosage: 25000 UNIT
     Route: 048
     Dates: start: 20160412
  12. CHOLESTYRAMINE. [Concomitant]
     Active Substance: CHOLESTYRAMINE
     Route: 048
     Dates: start: 20161221, end: 20161231
  13. RIVOTRIL [Concomitant]
     Active Substance: CLONAZEPAM
     Dosage: 3 GTT (DROP)
     Route: 048
     Dates: start: 20170404

REACTIONS (1)
  - Pneumonia [Recovered/Resolved]

NARRATIVE: CASE EVENT DATE: 20170804
